FAERS Safety Report 6208241-8 (Version None)
Quarter: 2009Q2

REPORT INFORMATION
  Report Type: 
  Country: None (occurrence: None)
  Receive Date: 20090529
  Receipt Date: 20090527
  Transmission Date: 20091009
  Serious: Yes (Other)
  Sender: FDA-Public Use
  Company Number: JP-ALLERGAN-0906014US

PATIENT
  Age: 5 Year
  Sex: Female
  Weight: 19 kg

DRUGS (3)
  1. ALESION SYRUP [Suspect]
     Indication: RHINITIS ALLERGIC
     Dosage: 0.9 G, QD
     Route: 048
     Dates: start: 20090420
  2. KLARICID [Suspect]
     Indication: DRUG USE FOR UNKNOWN INDICATION
     Dosage: 1.2 G, QD
     Route: 048
     Dates: start: 20090420
  3. MUCOSAL-L (MUCOSOLVAN) [Suspect]
     Indication: DRUG USE FOR UNKNOWN INDICATION
     Dosage: 0.6 G, QD
     Route: 048
     Dates: start: 20090420

REACTIONS (2)
  - AGITATION [None]
  - HALLUCINATION [None]
